FAERS Safety Report 15682163 (Version 2)
Quarter: 2020Q3

REPORT INFORMATION
  Report Type: Report from Study
  Country: SG (occurrence: SG)
  Receive Date: 20181203
  Receipt Date: 20181214
  Transmission Date: 20201104
  Serious: Yes (Hospitalization, Other)
  Sender: FDA-Public Use
  Company Number: SG-PFIZER INC-2018495929

PATIENT
  Age: 51 Year
  Sex: Female
  Weight: 64.8 kg

DRUGS (3)
  1. TALAZOPARIB. [Suspect]
     Active Substance: TALAZOPARIB
     Dosage: 3 MG, DAILY (3 TABLETS OF 1MG DOSES)
     Dates: start: 20181120, end: 20181126
  2. TALAZOPARIB. [Suspect]
     Active Substance: TALAZOPARIB
     Indication: BREAST CANCER METASTATIC
     Dosage: 1 MG, UNK
     Dates: start: 20180829
  3. TALAZOPARIB. [Suspect]
     Active Substance: TALAZOPARIB
     Dosage: 0.75 MG, 1X/DAY, IN THE MORNING
     Route: 048
     Dates: start: 20181017, end: 20181026

REACTIONS (5)
  - Pancytopenia [Recovering/Resolving]
  - Platelet count decreased [Unknown]
  - Overdose [Recovering/Resolving]
  - Cytopenia [Unknown]
  - Product dispensing error [Unknown]

NARRATIVE: CASE EVENT DATE: 20181120
